FAERS Safety Report 8413498-9 (Version None)
Quarter: 2012Q2

REPORT INFORMATION
  Report Type: 
  Country: None (occurrence: None)
  Receive Date: 20120605
  Receipt Date: 20120531
  Transmission Date: 20120825
  Serious: No
  Sender: FDA-Public Use
  Company Number: US-PFIZER INC-2012131958

PATIENT
  Sex: Male
  Weight: 99.773 kg

DRUGS (2)
  1. METFORMIN [Concomitant]
     Indication: DIABETES MELLITUS
     Dosage: UNK
  2. LYRICA [Suspect]
     Indication: DIABETIC FOOT
     Dosage: 200 MG, 1X/DAY
     Route: 048
     Dates: start: 20120401, end: 20120401

REACTIONS (1)
  - PAIN IN EXTREMITY [None]
